FAERS Safety Report 18141976 (Version 1)
Quarter: 2020Q3

REPORT INFORMATION
  Report Type: Spontaneous
  Country: GB (occurrence: GB)
  Receive Date: 20200813
  Receipt Date: 20200813
  Transmission Date: 20201103
  Serious: Yes (Disabling)
  Sender: FDA-Public Use
  Company Number: GB-TEVA-2020-GB-1812345

PATIENT
  Age: 70 Year
  Sex: Female

DRUGS (12)
  1. PARACETAMOL [Concomitant]
     Active Substance: ACETAMINOPHEN
  2. SALBUTAMOL [Concomitant]
     Active Substance: ALBUTEROL
  3. ACCORD?UK ASPIRIN [Concomitant]
  4. SODIUM CROMOGLICATE [Concomitant]
     Active Substance: CROMOLYN SODIUM
  5. LORAZEPAM. [Suspect]
     Active Substance: LORAZEPAM
     Indication: SLEEP DISORDER
     Dosage: .5 MILLIGRAM DAILY; AT NIGHT
     Route: 048
     Dates: start: 20200707, end: 20200717
  6. FLIXONASE AQUEOUS [Concomitant]
  7. ZOPICLONE [Concomitant]
     Active Substance: ZOPICLONE
  8. VISCOTEARS [Concomitant]
     Active Substance: CARBOMER
  9. CYCLIZINE HYDROCHLORIDE [Concomitant]
     Active Substance: CYCLIZINE HYDROCHLORIDE
  10. PRED FORTE [Concomitant]
     Active Substance: PREDNISOLONE ACETATE
  11. FOSTAIR [Concomitant]
     Active Substance: BECLOMETHASONE\FORMOTEROL
  12. LOSARTAN POTASSIUM. [Concomitant]
     Active Substance: LOSARTAN POTASSIUM

REACTIONS (2)
  - Metamorphopsia [Unknown]
  - Visual impairment [Not Recovered/Not Resolved]

NARRATIVE: CASE EVENT DATE: 20200717
